FAERS Safety Report 5514906-3 (Version None)
Quarter: 2007Q4

REPORT INFORMATION
  Report Type: 
  Country: None (occurrence: None)
  Receive Date: 20071109
  Receipt Date: 20071029
  Transmission Date: 20080405
  Serious: Yes (Other)
  Sender: FDA-Public Use
  Company Number: 2007SP021909

PATIENT
  Sex: Male

DRUGS (2)
  1. REBETOL [Suspect]
     Indication: HEPATITIS C
     Dosage: PO
     Route: 048
  2. INFERGEN [Suspect]
     Indication: HEPATITIS C
     Dates: start: 20060101

REACTIONS (5)
  - BLOOD PRESSURE INCREASED [None]
  - DECREASED APPETITE [None]
  - LOCALISED INTRAABDOMINAL FLUID COLLECTION [None]
  - MUSCLE SPASMS [None]
  - WEIGHT DECREASED [None]
